FAERS Safety Report 26183446 (Version 1)
Quarter: 2025Q4

REPORT INFORMATION
  Report Type: Spontaneous
  Country: US (occurrence: US)
  Receive Date: 20251221
  Receipt Date: 20251221
  Transmission Date: 20260117
  Serious: No
  Sender: ACCORD
  Company Number: US-COHERUS BIOSCIENCES, INC-2025-COH-US000191

PATIENT
  Age: 46 Year
  Sex: Female

DRUGS (6)
  1. UDENYCA [Suspect]
     Active Substance: PEGFILGRASTIM-CBQV
     Indication: Neutropenia
     Dosage: 6 MG, Q3WEEKS
     Route: 058
     Dates: start: 20250220, end: 20250220
  2. BLEOMYCIN SULFATE [Concomitant]
     Active Substance: BLEOMYCIN SULFATE
     Dosage: Q4WEEKS; LAST CHEMOTHERAPY CYCLE (CYCLE 6)
  3. DACARBAZINE [Concomitant]
     Active Substance: DACARBAZINE
     Dosage: Q4WEEKS; LAST CHEMOTHERAPY CYCLE (CYCLE 6)
  4. DOXORUBICIN HYDROCHLORIDE [Concomitant]
     Active Substance: DOXORUBICIN HYDROCHLORIDE
     Dosage: Q4WEEKS; LAST CHEMOTHERAPY CYCLE (CYCLE 6)
  5. VINBLASTINE SULFATE [Concomitant]
     Active Substance: VINBLASTINE SULFATE
     Dosage: Q4WEEKS; LAST CHEMOTHERAPY CYCLE (CYCLE 6)Q4WEEKS; LAST CHEMOTHERAPY CYCLE (CYCLE 6)
  6. UDENYCA [Suspect]
     Active Substance: PEGFILGRASTIM-CBQV
     Indication: Neutropenia
     Dosage: 6 MG, Q3WEEKS
     Route: 058
     Dates: start: 20250306, end: 20250306

REACTIONS (2)
  - Nausea [Not Recovered/Not Resolved]
  - Vomiting [Not Recovered/Not Resolved]

NARRATIVE: CASE EVENT DATE: 20250222
